FAERS Safety Report 21450014 (Version 1)
Quarter: 2022Q4

REPORT INFORMATION
  Report Type: Spontaneous
  Country: US (occurrence: None)
  Receive Date: 20221012
  Receipt Date: 20221012
  Transmission Date: 20230113
  Serious: Yes (Hospitalization)
  Sender: FDA-Public Use
  Company Number: None

PATIENT
  Age: 55 Year
  Sex: Male
  Weight: 101.5 kg

DRUGS (4)
  1. CYCLOPHOSPHAMIDE [Suspect]
     Active Substance: CYCLOPHOSPHAMIDE
     Dates: end: 20180124
  2. CYTARABINE [Suspect]
     Active Substance: CYTARABINE
     Dates: end: 20171227
  3. MERCAPTOPURINE [Suspect]
     Active Substance: MERCAPTOPURINE
     Dates: end: 20180101
  4. METHOTREXATE [Suspect]
     Active Substance: METHOTREXATE
     Dates: end: 20180118

REACTIONS (2)
  - Dizziness [None]
  - Hyperuricaemia [None]

NARRATIVE: CASE EVENT DATE: 20171228
